FAERS Safety Report 10222219 (Version 3)
Quarter: 2014Q3

REPORT INFORMATION
  Report Type: Report from Study
  Country: US (occurrence: US)
  Receive Date: 20140606
  Receipt Date: 20140723
  Transmission Date: 20150326
  Serious: Yes (Other)
  Sender: FDA-Public Use
  Company Number: US-BAYER-2014-080583

PATIENT
  Age: 80 Year
  Sex: Female

DRUGS (2)
  1. STIVARGA [Suspect]
     Active Substance: REGORAFENIB
     Indication: COLON CANCER
     Dosage: 160 MG, QD
     Route: 048
     Dates: end: 20140716
  2. STIVARGA [Suspect]
     Active Substance: REGORAFENIB
     Indication: COLON CANCER
     Dosage: 160 MG, QD
     Route: 048
     Dates: start: 20140519, end: 20140528

REACTIONS (11)
  - Jaundice [None]
  - Hypotension [None]
  - Liver function test abnormal [None]
  - Fatigue [None]
  - Aphagia [None]
  - Rash [Not Recovered/Not Resolved]
  - Pain in extremity [Not Recovered/Not Resolved]
  - Toxicity to various agents [Not Recovered/Not Resolved]
  - Hypoaesthesia [None]
  - Pyrexia [None]
  - Fluid intake reduced [None]

NARRATIVE: CASE EVENT DATE: 20140521
